FAERS Safety Report 18043819 (Version 1)
Quarter: 2020Q3

REPORT INFORMATION
  Report Type: Spontaneous
  Country: US (occurrence: US)
  Receive Date: 20200720
  Receipt Date: 20200720
  Transmission Date: 20201103
  Serious: Yes (Other)
  Sender: FDA-Public Use
  Company Number: US-MYLANLABS-2020M1063744

PATIENT
  Sex: Female
  Weight: 91 kg

DRUGS (1)
  1. ESTRADIOL TRANSDERMAL SYSTEM [Suspect]
     Active Substance: ESTRADIOL
     Indication: HORMONE REPLACEMENT THERAPY
     Dosage: 0.1 MILLIGRAM, QD 1 TRANSDERMAL PATCH CHANGED EVERY 3?4 DAYS
     Route: 062
     Dates: start: 2020

REACTIONS (5)
  - Product substitution issue [Unknown]
  - Application site vesicles [Recovered/Resolved]
  - Anxiety [Unknown]
  - Depression [Unknown]
  - Application site rash [Unknown]

NARRATIVE: CASE EVENT DATE: 2020
